FAERS Safety Report 12958955 (Version 1)
Quarter: 2016Q4

REPORT INFORMATION
  Report Type: Spontaneous
  Country: US (occurrence: US)
  Receive Date: 20161117
  Receipt Date: 20161117
  Transmission Date: 20170207
  Serious: Yes (Disabling)
  Sender: FDA-Public Use
  Company Number: None

PATIENT
  Age: 39 Year
  Sex: Female

DRUGS (11)
  1. RANITIDINE. [Concomitant]
     Active Substance: RANITIDINE
  2. DOCUSATE [Concomitant]
     Active Substance: DOCUSATE
  3. PREDNISONE. [Concomitant]
     Active Substance: PREDNISONE
  4. CALCIUM CARBONATE. [Concomitant]
     Active Substance: CALCIUM CARBONATE
  5. PRAVASTATIN. [Concomitant]
     Active Substance: PRAVASTATIN
  6. SULFAMETHOXAZOLE/TRIMETHOPRIM [Concomitant]
     Active Substance: SULFAMETHOXAZOLE\TRIMETHOPRIM
  7. TACROLIMUS. [Suspect]
     Active Substance: TACROLIMUS
     Indication: IMMUNOSUPPRESSION
     Dosage: 7MG / 6MG EVERY 12 HOURS PO
     Route: 048
     Dates: start: 20160503
  8. ACETAMINOPHEN. [Concomitant]
     Active Substance: ACETAMINOPHEN
  9. CARVEDILOL. [Concomitant]
     Active Substance: CARVEDILOL
  10. MULTIVITAMIN [Concomitant]
     Active Substance: VITAMINS
  11. MYCOPHENOLATE [Concomitant]
     Active Substance: MYCOPHENOLIC ACID

REACTIONS (3)
  - Pain of skin [None]
  - Skin burning sensation [None]
  - Alopecia [None]

NARRATIVE: CASE EVENT DATE: 20160909
